FAERS Safety Report 5034254-8 (Version None)
Quarter: 2006Q2

REPORT INFORMATION
  Report Type: 
  Country: None (occurrence: None)
  Receive Date: 20060626
  Receipt Date: 20060427
  Transmission Date: 20061013
  Serious: Yes (Life-Threatening)
  Sender: FDA-Public Use
  Company Number: 2006PK01280

PATIENT
  Age: 23422 Day
  Sex: Female
  Weight: 73 kg

DRUGS (4)
  1. ATACAND [Suspect]
     Indication: HYPERTENSION
     Route: 048
  2. ATACAND [Interacting]
     Route: 048
  3. LIPOMERZ [Interacting]
     Indication: HYPERTRIGLYCERIDAEMIA
  4. HORMON [Interacting]

REACTIONS (3)
  - BLOOD PRESSURE INCREASED [None]
  - DRUG INTERACTION [None]
  - HEART RATE DECREASED [None]
